FAERS Safety Report 6786041-8 (Version None)
Quarter: 2010Q2

REPORT INFORMATION
  Report Type: 
  Country: None (occurrence: None)
  Receive Date: 20100623
  Receipt Date: 20100609
  Transmission Date: 20101027
  Serious: Yes (Other)
  Sender: FDA-Public Use
  Company Number: PHHY2010JP36149

PATIENT
  Age: 50 Year
  Sex: Male

DRUGS (1)
  1. ZOMETA [Suspect]
     Indication: METASTASES TO SPINE
     Route: 041

REACTIONS (6)
  - BONE DISORDER [None]
  - OSTEONECROSIS OF JAW [None]
  - OSTEOSCLEROSIS [None]
  - PRIMARY SEQUESTRUM [None]
  - TOOTH IMPACTED [None]
  - TOOTHACHE [None]
